FAERS Safety Report 9049543 (Version 2)
Quarter: 2013Q2

REPORT INFORMATION
  Report Type: Spontaneous
  Country: PL (occurrence: PL)
  Receive Date: 20130205
  Receipt Date: 20130514
  Transmission Date: 20140414
  Serious: Yes (Death)
  Sender: FDA-Public Use
  Company Number: PL-CELGENEUS-129-50794-12030022

PATIENT
  Age: 73 Year
  Sex: Female

DRUGS (4)
  1. VIDAZA [Suspect]
     Indication: ACUTE MYELOID LEUKAEMIA
     Dosage: 123 MILLIGRAM
     Route: 065
     Dates: start: 20110517, end: 20111224
  2. PERINDOPRIL [Concomitant]
     Indication: HYPERTENSION
     Dosage: 10 MILLIGRAM
     Route: 048
     Dates: start: 20120317
  3. CARVEDILOL [Concomitant]
     Indication: HYPERTENSION
     Dosage: 25 MILLIGRAM
     Route: 065
     Dates: start: 20120317
  4. INDAPAMID [Concomitant]
     Indication: HYPERTENSION
     Dosage: 1.5 MILLIGRAM
     Route: 065
     Dates: start: 20120317

REACTIONS (1)
  - Acute myeloid leukaemia [Fatal]
